FAERS Safety Report 17782845 (Version 2)
Quarter: 2020Q2

REPORT INFORMATION
  Report Type: Report from Study
  Country: GB (occurrence: GB)
  Receive Date: 20200513
  Receipt Date: 20200521
  Transmission Date: 20200714
  Serious: Yes (Other)
  Sender: FDA-Public Use
  Company Number: GB-SAMSUNG BIOEPIS-SB-2020-05149

PATIENT
  Sex: Male

DRUGS (1)
  1. IMRALDI [Suspect]
     Active Substance: ADALIMUMAB
     Indication: COLITIS ULCERATIVE
     Route: 058
     Dates: start: 20200122

REACTIONS (8)
  - Headache [Unknown]
  - Chronic obstructive pulmonary disease [Unknown]
  - Pancreatitis chronic [Unknown]
  - Fatigue [Unknown]
  - Malaise [Unknown]
  - Anxiety [Unknown]
  - Dyspnoea [Unknown]
  - Neck pain [Recovered/Resolved]
